FAERS Safety Report 8069042-1 (Version None)
Quarter: 2012Q1

REPORT INFORMATION
  Report Type: 
  Country: None (occurrence: None)
  Receive Date: 20120125
  Receipt Date: 20120125
  Transmission Date: 20120608
  Serious: Yes (Death)
  Sender: FDA-Public Use
  Company Number: NO-TEVA-281555ISR

PATIENT

DRUGS (5)
  1. CANDESARTAN WORLD [Suspect]
     Dosage: UNK
     Route: 064
  2. PRAMIPEXOLE DIHYCHLLORIDE [Suspect]
     Route: 064
  3. AMITRIPTYLINE HCL [Suspect]
     Route: 064
  4. METOCLOPRAMIDE [Suspect]
     Route: 064
  5. ZOLMITRIPTAN [Suspect]
     Route: 064

REACTIONS (2)
  - OLIGOHYDRAMNIOS [None]
  - CONGENITAL ANOMALY [None]
